FAERS Safety Report 16240666 (Version 1)
Quarter: 2019Q2

REPORT INFORMATION
  Report Type: Spontaneous
  Country: NZ (occurrence: NZ)
  Receive Date: 20190425
  Receipt Date: 20190425
  Transmission Date: 20190711
  Serious: Yes (Other)
  Sender: FDA-Public Use
  Company Number: NZ-TAKEDA-2019TUS025847

PATIENT
  Age: 44 Year
  Sex: Male

DRUGS (2)
  1. FEBUXOSTAT. [Suspect]
     Active Substance: FEBUXOSTAT
     Indication: PRODUCT USED FOR UNKNOWN INDICATION
     Dosage: UNK
     Route: 048
  2. CELECOXIB. [Concomitant]
     Active Substance: CELECOXIB
     Route: 048

REACTIONS (1)
  - Anaphylactic reaction [Unknown]
